FAERS Safety Report 4488590-4 (Version None)
Quarter: 2004Q4

REPORT INFORMATION
  Report Type: 
  Country: None (occurrence: None)
  Receive Date: 20041026
  Receipt Date: 20041011
  Transmission Date: 20050328
  Serious: Yes (Hospitalization)
  Sender: FDA-Public Use
  Company Number: 2004-BP-06264BP

PATIENT
  Age: 66 Year
  Sex: Female
  Weight: 52.6 kg

DRUGS (16)
  1. SPIRIVA [Suspect]
     Indication: BRONCHOSPASM
     Dosage: 18 MCG, IH
     Route: 055
     Dates: start: 20040707, end: 20040718
  2. SPIRIVA [Suspect]
     Indication: CHRONIC OBSTRUCTIVE AIRWAYS DISEASE
     Dosage: 18 MCG, IH
     Route: 055
     Dates: start: 20040707, end: 20040718
  3. THEOPHYLLINE [Concomitant]
  4. PREDNISONE [Concomitant]
  5. ACCOLATE [Concomitant]
  6. XOPENEX [Concomitant]
  7. AZMACORT [Concomitant]
  8. BUSPAN (HYOSCINE BUTYLPROMIDE) [Concomitant]
  9. VERELAN (VERAPAMIL HYDROCHLORIDE) [Concomitant]
  10. K-DUR 10 [Concomitant]
  11. LASIX (LASIX) [Concomitant]
  12. UNIVASC [Concomitant]
  13. THEO-DUR [Concomitant]
  14. PREVENAR (PNEUMOCOCCAL CONJUGATE VACCINE) [Concomitant]
  15. PROVERA [Concomitant]
  16. AZULFIDINE [Concomitant]

REACTIONS (3)
  - ATRIAL TACHYCARDIA [None]
  - DRUG TOXICITY [None]
  - DYSPNOEA [None]
